FAERS Safety Report 7052118-5 (Version None)
Quarter: 2010Q4

REPORT INFORMATION
  Report Type: 
  Country: None (occurrence: None)
  Receive Date: 20101018
  Receipt Date: 20101018
  Transmission Date: 20110411
  Serious: Yes (Hospitalization)
  Sender: FDA-Public Use
  Company Number: None

PATIENT
  Age: 83 Year
  Sex: Male

DRUGS (2)
  1. RITUXIMAB [Suspect]
     Indication: NEOPLASM MALIGNANT
     Dosage: 750 MG OTHER
     Route: 050
     Dates: start: 20100921
  2. DOXORUBICIN HCL [Suspect]
     Dosage: 100 MG ONCE IV
     Route: 042
     Dates: start: 20100921

REACTIONS (5)
  - ABDOMINAL PAIN [None]
  - DYSURIA [None]
  - FEBRILE NEUTROPENIA [None]
  - NAUSEA [None]
  - VOMITING [None]
